FAERS Safety Report 4798518-5 (Version None)
Quarter: 2005Q4

REPORT INFORMATION
  Report Type: 
  Country: None (occurrence: None)
  Receive Date: 20051014
  Receipt Date: 20051007
  Transmission Date: 20060501
  Serious: Yes (Disabling)
  Sender: FDA-Public Use
  Company Number: PR-MERCK-0510USA06419

PATIENT
  Sex: Male

DRUGS (4)
  1. VIOXX [Suspect]
     Indication: ARTHRITIS
     Route: 048
  2. VIOXX [Suspect]
     Indication: INTERVERTEBRAL DISC PROTRUSION
     Route: 048
  3. CELEBREX [Concomitant]
     Indication: ARTHRITIS
     Route: 065
  4. CELEBREX [Concomitant]
     Indication: INTERVERTEBRAL DISC PROTRUSION
     Route: 065

REACTIONS (8)
  - CARDIOVASCULAR DISORDER [None]
  - CORONARY ARTERY DISEASE [None]
  - DEPRESSION [None]
  - HYPERTENSION [None]
  - HYPOAESTHESIA [None]
  - MYOCARDIAL INFARCTION [None]
  - OEDEMA PERIPHERAL [None]
  - PAIN IN EXTREMITY [None]
